FAERS Safety Report 6336304-5 (Version None)
Quarter: 2009Q3

REPORT INFORMATION
  Report Type: 
  Country: None (occurrence: None)
  Receive Date: 20090901
  Receipt Date: 20090820
  Transmission Date: 20100115
  Serious: Yes (Hospitalization)
  Sender: FDA-Public Use
  Company Number: PHHY2009FR35715

PATIENT
  Sex: Male

DRUGS (7)
  1. VOLTAREN [Suspect]
     Indication: NECK PAIN
     Dosage: 75 MG, QD
     Route: 048
     Dates: start: 20090219, end: 20090225
  2. OMEPRAZOLE [Suspect]
     Indication: ABDOMINAL PAIN UPPER
     Dosage: UNK
     Route: 048
     Dates: start: 20090219, end: 20090225
  3. LANSOPRAZOLE [Concomitant]
     Dosage: UNK
     Dates: start: 20090424
  4. COVERSYL [Concomitant]
     Indication: HYPERTENSION
     Dosage: UNK
     Dates: start: 19990101, end: 20090101
  5. ZANIDIP [Concomitant]
     Dosage: 10 MG, QD
     Dates: start: 20090101
  6. XALATAN [Concomitant]
  7. DAFALGAN [Concomitant]

REACTIONS (15)
  - ASTHENIA [None]
  - BONE PAIN [None]
  - GENERAL PHYSICAL HEALTH DETERIORATION [None]
  - HAEMOGLOBIN DECREASED [None]
  - INFECTION [None]
  - LYMPHOPENIA [None]
  - NEUTROPHIL COUNT INCREASED [None]
  - NORMOCHROMIC NORMOCYTIC ANAEMIA [None]
  - PYREXIA [None]
  - RENAL FAILURE ACUTE [None]
  - RENAL IMPAIRMENT [None]
  - RENAL TUBULAR ATROPHY [None]
  - RHINITIS [None]
  - TUBULOINTERSTITIAL NEPHRITIS [None]
  - WEIGHT DECREASED [None]
